FAERS Safety Report 7565009-8 (Version None)
Quarter: 2011Q2

REPORT INFORMATION
  Report Type: 
  Country: None (occurrence: None)
  Receive Date: 20110622
  Receipt Date: 20110425
  Transmission Date: 20111010
  Serious: Yes (Death)
  Sender: FDA-Public Use
  Company Number: US-MYLANLABS-2011S1006242

PATIENT
  Age: 55 Year
  Sex: Male
  Weight: 71.22 kg

DRUGS (6)
  1. CLOZAPINE [Suspect]
     Indication: PSYCHOTIC DISORDER
     Route: 048
     Dates: start: 20100501, end: 20110308
  2. DEPAKOTE [Concomitant]
  3. LORAZEPAM [Concomitant]
  4. CLOMIPRAMINE HYDROCHLORIDE [Concomitant]
  5. LORAZEPAM [Concomitant]
  6. SEROQUEL [Concomitant]

REACTIONS (1)
  - HEPATIC NEOPLASM MALIGNANT [None]
